FAERS Safety Report 12213260 (Version 1)
Quarter: 2016Q1

REPORT INFORMATION
  Report Type: Spontaneous
  Country: US (occurrence: US)
  Receive Date: 20160328
  Receipt Date: 20160328
  Transmission Date: 20160526
  Serious: Yes (Other)
  Sender: FDA-Public Use
  Company Number: US-JNJFOC-20160315160

PATIENT
  Age: 79 Year
  Sex: Female
  Weight: 63.5 kg

DRUGS (1)
  1. NEUTROGENA T/GEL THERAPEUTIC [Suspect]
     Active Substance: COAL TAR\PYRITHIONE ZINC\SALICYLIC ACID
     Indication: PRURITUS
     Dosage: 1 TABLESPOON ONCE
     Route: 061
     Dates: start: 20160313, end: 20160313

REACTIONS (4)
  - Erythema [Not Recovered/Not Resolved]
  - Pruritus [Not Recovered/Not Resolved]
  - Rash [Not Recovered/Not Resolved]
  - Hypersensitivity [Not Recovered/Not Resolved]

NARRATIVE: CASE EVENT DATE: 20160313
